FAERS Safety Report 24695475 (Version 1)
Quarter: 2024Q4

REPORT INFORMATION
  Report Type: Spontaneous
  Country: CN (occurrence: CN)
  Receive Date: 20241204
  Receipt Date: 20241204
  Transmission Date: 20250115
  Serious: No
  Sender: ALKEM
  Company Number: CN-ALKEM LABORATORIES LIMITED-CN-ALKEM-2023-15716

PATIENT
  Sex: Female

DRUGS (3)
  1. METFORMIN HYDROCHLORIDE [Suspect]
     Active Substance: METFORMIN HYDROCHLORIDE
     Indication: Polycystic ovarian syndrome
     Dosage: 500 MG/DAY (INITIAL DOSE)
     Route: 065
  2. METFORMIN HYDROCHLORIDE [Suspect]
     Active Substance: METFORMIN HYDROCHLORIDE
     Dosage: 1500 MG/DAY (FINAL DOSE WITHIN 2 WEEKS)
     Route: 065
  3. DIANE (CYPROTERONE ACETATE\ETHINYL ESTRADIOL) [Suspect]
     Active Substance: CYPROTERONE ACETATE\ETHINYL ESTRADIOL
     Indication: Polycystic ovarian syndrome
     Dosage: UNK
     Route: 065

REACTIONS (1)
  - Exposure during pregnancy [Unknown]
